FAERS Safety Report 5571876-X (Version None)
Quarter: 2007Q4

REPORT INFORMATION
  Report Type: 
  Country: None (occurrence: None)
  Receive Date: 20071221
  Receipt Date: 20071207
  Transmission Date: 20080405
  Serious: Yes (Other)
  Sender: FDA-Public Use
  Company Number: GB-GENENTECH-253007

PATIENT
  Age: 42 Year
  Sex: Female
  Weight: 76.5 kg

DRUGS (6)
  1. HERCEPTIN [Suspect]
     Indication: BREAST CANCER
     Dosage: UNK, UNK
     Route: 042
     Dates: start: 20060915, end: 20071001
  2. TAMOXIFEN CITRATE [Suspect]
     Indication: BREAST CANCER
     Dosage: 20 UNK, UNK
     Route: 048
     Dates: start: 20061212
  3. CO-CODAMOL [Concomitant]
     Indication: PAIN
     Dates: start: 20051031
  4. ACETAMINOPHEN [Concomitant]
     Indication: PAIN
     Dates: start: 19880518
  5. ALBUTEROL [Concomitant]
     Indication: ASTHMA
     Dates: start: 20020318
  6. LEVOTHYROXINE SODIUM [Concomitant]
     Indication: HYPOTHYROIDISM
     Dates: start: 19880518

REACTIONS (1)
  - TYPE 2 DIABETES MELLITUS [None]
